FAERS Safety Report 4844339-4 (Version None)
Quarter: 2005Q4

REPORT INFORMATION
  Report Type: 
  Country: None (occurrence: None)
  Receive Date: 20051202
  Receipt Date: 20051004
  Transmission Date: 20060501
  Serious: Yes (Hospitalization, Other)
  Sender: FDA-Public Use
  Company Number: US-MERCK-0510USA03295

PATIENT
  Age: 62 Year
  Sex: Female
  Weight: 75 kg

DRUGS (4)
  1. VIOXX [Suspect]
     Indication: ARTHRITIS
     Route: 048
     Dates: start: 20010101, end: 20030101
  2. [THERAPY UNSPECIFIED] [Concomitant]
     Indication: HYPERTENSION
     Route: 065
  3. [THERAPY UNSPECIFIED] [Concomitant]
     Indication: NERVOUSNESS
     Route: 065
  4. [THERAPY UNSPECIFIED] [Concomitant]
     Indication: PAIN
     Route: 065

REACTIONS (5)
  - BACK PAIN [None]
  - CEREBROVASCULAR ACCIDENT [None]
  - DEHYDRATION [None]
  - DYSPNOEA [None]
  - HYPERTENSION [None]
